FAERS Safety Report 6094731-8 (Version None)
Quarter: 2009Q1

REPORT INFORMATION
  Report Type: 
  Country: None (occurrence: None)
  Receive Date: 20090225
  Receipt Date: 20090209
  Transmission Date: 20090719
  Serious: Yes (Disabling)
  Sender: FDA-Public Use
  Company Number: 2009S1002229

PATIENT
  Age: 22 Year
  Sex: Male

DRUGS (4)
  1. DOXORUBICIN HCL [Suspect]
     Indication: EWING'S SARCOMA
     Dosage: 8.1 MG/M**2;WEEKLY;
  2. CYCLOPHOSPHAMIDE [Suspect]
     Indication: EWING'S SARCOMA
     Dosage: 240 MG/M**2;WEEKLY ; 2000MG/M**2
  3. ETOPOSIDE [Suspect]
     Indication: EWING'S SARCOMA
     Dosage: 8.1  MG/M**2;WEEKLY
  4. IFOSFAMIDE [Suspect]
     Indication: EWING'S SARCOMA
     Dosage: 1300 MG/M**2;WEEKLY

REACTIONS (2)
  - ARM AMPUTATION [None]
  - BONE SARCOMA [None]
